FAERS Safety Report 23213914 (Version 3)
Quarter: 2024Q2

REPORT INFORMATION
  Report Type: Spontaneous
  Country: JP (occurrence: JP)
  Receive Date: 20231121
  Receipt Date: 20240401
  Transmission Date: 20240716
  Serious: Yes (Hospitalization, Other)
  Sender: FDA-Public Use
  Company Number: JP-MSD-2311JPN002101J

PATIENT
  Sex: Male
  Weight: 49 kg

DRUGS (5)
  1. KEYTRUDA [Suspect]
     Active Substance: PEMBROLIZUMAB
     Indication: Head and neck cancer stage IV
     Dosage: 200 MILLIGRAM, Q3W
     Route: 041
     Dates: start: 20230210, end: 20230519
  2. FLUOROURACIL [Concomitant]
     Active Substance: FLUOROURACIL
     Indication: Head and neck cancer stage IV
     Dosage: UNK
     Route: 041
     Dates: start: 20121210, end: 20130521
  3. FLUOROURACIL [Concomitant]
     Active Substance: FLUOROURACIL
     Dosage: 1000 MILLIGRAM/SQ. METER, 4 TIMES EVERY 3 WEEKS
     Route: 041
     Dates: start: 20230210, end: 20230519
  4. CISPLATIN [Concomitant]
     Active Substance: CISPLATIN
     Indication: Head and neck cancer stage IV
     Dosage: UNK
     Route: 041
     Dates: start: 20121120, end: 20130521
  5. CISPLATIN [Concomitant]
     Active Substance: CISPLATIN
     Dosage: 70 MILLIGRAM/SQ. METER, EVERY 4 WEEKS
     Route: 041
     Dates: start: 20230210, end: 20230519

REACTIONS (2)
  - Malignant neoplasm progression [Unknown]
  - Aplasia pure red cell [Unknown]

NARRATIVE: CASE EVENT DATE: 20230101
